FAERS Safety Report 16470802 (Version 1)
Quarter: 2019Q2

REPORT INFORMATION
  Report Type: Report from Study
  Country: US (occurrence: US)
  Receive Date: 20190624
  Receipt Date: 20190624
  Transmission Date: 20190711
  Serious: Yes (Hospitalization, Other)
  Sender: FDA-Public Use
  Company Number: PHHY2018US178588

PATIENT
  Sex: Male
  Weight: 55 kg

DRUGS (2)
  1. TOBI PODHALER [Suspect]
     Active Substance: TOBRAMYCIN
     Indication: CYSTIC FIBROSIS
     Dosage: UNK
     Route: 065
  2. TOBI PODHALER [Suspect]
     Active Substance: TOBRAMYCIN
     Dosage: 28 MG, UNK
     Route: 065
     Dates: start: 20181115, end: 20181120

REACTIONS (3)
  - Renal impairment [Recovering/Resolving]
  - Cystic fibrosis [Unknown]
  - Hypertension [Unknown]
